FAERS Safety Report 15170194 (Version 22)
Quarter: 2022Q1

REPORT INFORMATION
  Report Type: Spontaneous
  Country: US (occurrence: US)
  Receive Date: 20180720
  Receipt Date: 20220121
  Transmission Date: 20220423
  Serious: Yes (Other)
  Sender: FDA-Public Use
  Company Number: US-PFIZER INC-2018294103

PATIENT
  Age: 63 Year
  Sex: Female
  Weight: 60 kg

DRUGS (10)
  1. LYRICA [Suspect]
     Active Substance: PREGABALIN
     Indication: Fibromyalgia
     Dosage: 75 MG, 1X/DAY
     Route: 048
  2. LYRICA [Suspect]
     Active Substance: PREGABALIN
     Indication: Diabetic neuropathy
     Dosage: 100 MG, 1X/DAY (NIGHT)
     Route: 048
  3. LYRICA [Suspect]
     Active Substance: PREGABALIN
     Dosage: 150 MG, DAILY  (ONCE EVERY NIGHT)
     Route: 048
     Dates: start: 2008, end: 20180805
  4. LYRICA [Suspect]
     Active Substance: PREGABALIN
     Dosage: 150 MG, DAILY
     Route: 048
  5. LYRICA [Suspect]
     Active Substance: PREGABALIN
     Dosage: 50 MG, 1X/DAY (TAKE 1 CAPSULE BY MOUTH EVERY MORNING ALONG WITH THE OTHER PRESCRIPTION OF 150MG)
     Route: 048
  6. LYRICA [Suspect]
     Active Substance: PREGABALIN
     Dosage: 150 MG (TAKE 1 CAPSULE BY MOUTH EVERY MORNING ALONG WITH THE OTHER PRESCRIPTION OF 150MG)
     Route: 048
  7. JANUVIA [Concomitant]
     Active Substance: SITAGLIPTIN PHOSPHATE
     Dosage: UNK
  8. CLONAZEPAM [Concomitant]
     Active Substance: CLONAZEPAM
     Indication: Restless legs syndrome
     Dosage: 2 MG, 1X/DAY (1 TIME DAILY)
     Route: 048
  9. CYMBALTA [Concomitant]
     Active Substance: DULOXETINE HYDROCHLORIDE
     Dosage: UNK
  10. MELOXICAM [Concomitant]
     Active Substance: MELOXICAM
     Indication: Arthritis
     Dosage: 15 MG, 1X/DAY (1 TIME DAILY)
     Route: 048

REACTIONS (19)
  - Meningioma [Not Recovered/Not Resolved]
  - Drug dependence [Not Recovered/Not Resolved]
  - Drug ineffective [Unknown]
  - Product dose omission issue [Unknown]
  - Arthralgia [Not Recovered/Not Resolved]
  - Arthralgia [Not Recovered/Not Resolved]
  - Back pain [Not Recovered/Not Resolved]
  - Concussion [Unknown]
  - Contusion [Unknown]
  - Fall [Recovered/Resolved with Sequelae]
  - General physical condition abnormal [Recovering/Resolving]
  - Headache [Unknown]
  - Insomnia [Not Recovered/Not Resolved]
  - Pain [Unknown]
  - Restless legs syndrome [Recovering/Resolving]
  - Road traffic accident [Unknown]
  - Scoliosis [Not Recovered/Not Resolved]
  - Sleep disorder [Unknown]
  - Stress [Unknown]

NARRATIVE: CASE EVENT DATE: 20140101
